FAERS Safety Report 17670607 (Version 3)
Quarter: 2020Q3

REPORT INFORMATION
  Report Type: Report from Study
  Country: US (occurrence: US)
  Receive Date: 20200415
  Receipt Date: 20200731
  Transmission Date: 20201102
  Serious: No
  Sender: FDA-Public Use
  Company Number: US-BIOVITRUM-2020US1711

PATIENT
  Sex: Female

DRUGS (1)
  1. KINERET [Suspect]
     Active Substance: ANAKINRA
     Indication: RHEUMATOID ARTHRITIS
     Route: 058
     Dates: start: 20190226

REACTIONS (5)
  - Pain in extremity [Unknown]
  - Blood sodium decreased [Unknown]
  - Coronavirus infection [Unknown]
  - Immune system disorder [Unknown]
  - Peripheral swelling [Unknown]
